FAERS Safety Report 22104658 (Version 1)
Quarter: 2023Q1

REPORT INFORMATION
  Report Type: Spontaneous
  Country: PT (occurrence: PT)
  Receive Date: 20230316
  Receipt Date: 20230316
  Transmission Date: 20230417
  Serious: Yes (Hospitalization)
  Sender: FDA-Public Use
  Company Number: PT-VERTEX PHARMACEUTICALS-2023-003967

PATIENT

DRUGS (1)
  1. ELEXACAFTOR\IVACAFTOR\TEZACAFTOR [Suspect]
     Active Substance: ELEXACAFTOR\IVACAFTOR\TEZACAFTOR
     Indication: Cystic fibrosis
     Dosage: UNK FREQ
     Route: 048

REACTIONS (20)
  - Infective pulmonary exacerbation of cystic fibrosis [Unknown]
  - Visual impairment [Unknown]
  - Sensory disturbance [Unknown]
  - Paraesthesia [Unknown]
  - Depression [Unknown]
  - Dysphoria [Unknown]
  - Depersonalisation/derealisation disorder [Unknown]
  - Bipolar disorder [Unknown]
  - Testicular pain [Unknown]
  - Chalazion [Unknown]
  - Bartholinitis [Unknown]
  - Wheezing [Unknown]
  - Tonsillitis [Unknown]
  - Hepatic enzyme increased [Recovered/Resolved]
  - Blood creatine phosphokinase increased [Unknown]
  - Blood bilirubin increased [Unknown]
  - Rash [Unknown]
  - Abdominal pain upper [Unknown]
  - Headache [Unknown]
  - Diarrhoea [Unknown]
